FAERS Safety Report 4776639-0 (Version None)
Quarter: 2005Q3

REPORT INFORMATION
  Report Type: 
  Country: None (occurrence: None)
  Receive Date: 20050923
  Receipt Date: 20050505
  Transmission Date: 20060218
  Serious: Yes (Hospitalization)
  Sender: FDA-Public Use
  Company Number: 2005AP02645

PATIENT
  Age: 61 Year
  Sex: Male

DRUGS (9)
  1. MEROPEN [Suspect]
     Indication: SEPSIS
     Route: 041
     Dates: start: 20050125, end: 20050128
  2. MEROPEN [Suspect]
     Route: 041
     Dates: start: 20050129, end: 20050208
  3. LASIX [Suspect]
     Indication: HEPATIC CIRRHOSIS
     Route: 042
     Dates: start: 20050125, end: 20050128
  4. GASTER [Concomitant]
     Indication: GASTRIC ULCER
     Dates: start: 20050124, end: 20050124
  5. SULPERAZONE [Concomitant]
     Route: 041
     Dates: start: 20050124, end: 20050125
  6. TERUFIS [Concomitant]
     Indication: HEPATIC ENCEPHALOPATHY
     Route: 041
     Dates: start: 20050124, end: 20050202
  7. REMINARON [Concomitant]
     Indication: DISSEMINATED INTRAVASCULAR COAGULATION
     Route: 041
     Dates: start: 20050125, end: 20050129
  8. BLOOD FORMULATION TRANSFUSION [Concomitant]
     Dates: start: 20050125, end: 20050125
  9. BLOOD FORMULATION TRANSFUSION [Concomitant]
     Dates: start: 20050126, end: 20050126

REACTIONS (1)
  - PANCREATITIS ACUTE [None]
